FAERS Safety Report 6440575-4 (Version None)
Quarter: 2009Q4

REPORT INFORMATION
  Report Type: 
  Country: None (occurrence: None)
  Receive Date: 20091113
  Receipt Date: 20091104
  Transmission Date: 20100525
  Serious: Yes (Other)
  Sender: FDA-Public Use
  Company Number: TR-ELI_LILLY_AND_COMPANY-TR200911001236

PATIENT
  Sex: Female

DRUGS (5)
  1. HUMULIN R [Suspect]
     Indication: GESTATIONAL DIABETES
     Dosage: 10 U, EACH MORNING
     Route: 058
     Dates: end: 20090728
  2. HUMULIN R [Suspect]
     Dosage: 10 U/NOON
     Route: 058
     Dates: end: 20090728
  3. HUMULIN R [Suspect]
     Dosage: 10 U, EACH EVENING
     Route: 058
     Dates: end: 20090728
  4. HUMULIN N [Suspect]
     Indication: GESTATIONAL DIABETES
     Dosage: 18 U/NIGHT
     Route: 058
     Dates: end: 20090728
  5. IRON [Concomitant]
     Dosage: UNK UNK, 2/D
     Route: 065
     Dates: start: 20090724

REACTIONS (2)
  - DRUG EXPOSURE DURING PREGNANCY [None]
  - STILLBIRTH [None]
